FAERS Safety Report 7504621-9 (Version None)
Quarter: 2011Q2

REPORT INFORMATION
  Report Type: 
  Country: None (occurrence: None)
  Receive Date: 20110525
  Receipt Date: 20110303
  Transmission Date: 20111010
  Serious: Yes (Other)
  Sender: FDA-Public Use
  Company Number: US-AMGEN-USASP2011009175

PATIENT
  Age: 41 Year
  Sex: Male
  Weight: 82.993 kg

DRUGS (2)
  1. TRICOR [Concomitant]
     Dosage: 48 MG, QD
  2. NPLATE [Suspect]
     Indication: IDIOPATHIC THROMBOCYTOPENIC PURPURA
     Dosage: 250 A?G, QWK
     Route: 058
     Dates: start: 20100317, end: 20100518

REACTIONS (1)
  - DRUG INEFFECTIVE [None]
